FAERS Safety Report 24034602 (Version 1)
Quarter: 2024Q3

REPORT INFORMATION
  Report Type: Report from Study
  Country: US (occurrence: US)
  Receive Date: 20240701
  Receipt Date: 20240701
  Transmission Date: 20241017
  Serious: No
  Sender: ROCHE
  Company Number: US-ROCHE-3415194

PATIENT
  Age: 16 Month
  Sex: Male
  Weight: 11.79 kg

DRUGS (2)
  1. EVRYSDI [Suspect]
     Active Substance: RISDIPLAM
     Indication: Spinal muscular atrophy
     Dosage: TAKE 2MG (2.7ML) VIA NG TUBE DAILY
     Route: 050
  2. EVRYSDI [Suspect]
     Active Substance: RISDIPLAM
     Dosage: TAKE 3.8ML (2.85MG) BY MOUTH EVERY DAY
     Route: 048

REACTIONS (3)
  - Weight increased [Unknown]
  - Weight decreased [Unknown]
  - Weight increased [Unknown]
